FAERS Safety Report 5891705-4 (Version None)
Quarter: 2008Q3

REPORT INFORMATION
  Report Type: 
  Country: None (occurrence: None)
  Receive Date: 20080918
  Receipt Date: 20080908
  Transmission Date: 20090109
  Serious: Yes (Other)
  Sender: FDA-Public Use
  Company Number: OMPQ-NO-08095-0745

PATIENT
  Age: 76 Year
  Sex: Male

DRUGS (6)
  1. OMNIPAQUE 140 [Suspect]
     Indication: DRUG USE FOR UNKNOWN INDICATION
     Dosage: 80 ML, SINGLE DOSE, I.V.
     Route: 042
     Dates: start: 20080826, end: 20080826
  2. PANCREATIN TRIPLE STRENGTH CAP [Concomitant]
  3. FERROUS SULFATE EXSICCATED (SLOW-FE) [Concomitant]
  4. DIASTASE [Concomitant]
  5. ACETAMINOPHEN (CALONAL) [Concomitant]
  6. LACTOMIN (BIOFERMIN) [Concomitant]

REACTIONS (5)
  - BLOOD PRESSURE SYSTOLIC DECREASED [None]
  - BRADYCARDIA [None]
  - HYPOPNOEA [None]
  - LOSS OF CONSCIOUSNESS [None]
  - PULSE PRESSURE DECREASED [None]
